FAERS Safety Report 23956842 (Version 1)
Quarter: 2024Q2

REPORT INFORMATION
  Report Type: Spontaneous
  Country: US (occurrence: US)
  Receive Date: 20240610
  Receipt Date: 20240610
  Transmission Date: 20240716
  Serious: No
  Sender: FDA-Public Use
  Company Number: US-VANDA PHARMACEUTICALS, INC-2023ILOUS001938

PATIENT
  Age: 42 Year
  Sex: Male

DRUGS (3)
  1. FANAPT [Suspect]
     Active Substance: ILOPERIDONE
     Indication: Schizoaffective disorder
     Dosage: 3 MILLIGRAM, BID,  SPLITTING A 6MG TABLET, TAKES 3MG, ORAL, EVERY MORNING AND 3MG
     Route: 048
  2. LITHIUM [Concomitant]
     Active Substance: LITHIUM
     Indication: Product used for unknown indication
     Dosage: UNK
  3. TRAZODONE [Concomitant]
     Active Substance: TRAZODONE HYDROCHLORIDE
     Indication: Product used for unknown indication
     Dosage: UNK

REACTIONS (3)
  - Logorrhoea [Unknown]
  - Hallucination, auditory [Unknown]
  - Wrong technique in product usage process [Unknown]
